FAERS Safety Report 5877362-1 (Version None)
Quarter: 2008Q3

REPORT INFORMATION
  Report Type: 
  Country: None (occurrence: None)
  Receive Date: 20080908
  Receipt Date: 20080813
  Transmission Date: 20090109
  Serious: Yes (Other)
  Sender: FDA-Public Use
  Company Number: 2006BI005066

PATIENT
  Age: 49 Year
  Sex: Female

DRUGS (6)
  1. AVONEX [Suspect]
     Indication: MULTIPLE SCLEROSIS
     Dosage: 30 UG; QW; IM
     Route: 030
     Dates: start: 20020801
  2. BETA ADRENERGIC [Concomitant]
  3. FORMOTEROL AND BUDESONIDE [Concomitant]
  4. FLUOXETINE [Concomitant]
  5. REBIF [Concomitant]
  6. PREDNISONE [Concomitant]

REACTIONS (6)
  - DEMYELINATION [None]
  - HYPERREFLEXIA [None]
  - MENINGIOMA [None]
  - MULTIPLE SCLEROSIS RELAPSE [None]
  - NEOPLASM PROGRESSION [None]
  - PARAPARESIS [None]
